FAERS Safety Report 15523155 (Version 1)
Quarter: 2018Q4

REPORT INFORMATION
  Report Type: Spontaneous
  Country: FR (occurrence: FR)
  Receive Date: 20181018
  Receipt Date: 20181018
  Transmission Date: 20190205
  Serious: Yes (Life-Threatening, Hospitalization)
  Sender: FDA-Public Use
  Company Number: FR-TEVA-2018-FR-965402

PATIENT
  Age: 20 Year
  Sex: Male
  Weight: 63 kg

DRUGS (5)
  1. IBUPROFENE [Suspect]
     Active Substance: IBUPROFEN
     Dosage: UNKNOWN
     Route: 048
     Dates: start: 20180825, end: 20180825
  2. SPIFEN [Suspect]
     Active Substance: IBUPROFEN
     Dosage: UNKNOWN
     Route: 048
     Dates: start: 20180825, end: 20180825
  3. IBUPROFENE [Suspect]
     Active Substance: IBUPROFEN
     Route: 065
  4. AMOXICILLINE BASE [Suspect]
     Active Substance: AMOXICILLIN
     Dosage: UNKNOWN
     Route: 048
     Dates: start: 20180825, end: 20180825
  5. CANNABIS ET RESINE [Suspect]
     Active Substance: CANNABIS SATIVA SUBSP. INDICA TOP
     Dosage: UNKNOWN
     Route: 065

REACTIONS (1)
  - Coma [Recovered/Resolved]

NARRATIVE: CASE EVENT DATE: 20180826
